FAERS Safety Report 14673708 (Version 3)
Quarter: 2018Q3

REPORT INFORMATION
  Report Type: Report from Study
  Country: CL (occurrence: CL)
  Receive Date: 20180323
  Receipt Date: 20180928
  Transmission Date: 20181010
  Serious: Yes (Hospitalization, Other)
  Sender: FDA-Public Use
  Company Number: CL-BRISTOL-MYERS SQUIBB COMPANY-BMS-2017-082298

PATIENT
  Age: 54 Year
  Sex: Female

DRUGS (1)
  1. ABATACEPT [Suspect]
     Active Substance: ABATACEPT
     Indication: RHEUMATOID ARTHRITIS
     Dosage: 125 MG, QWK
     Route: 058
     Dates: start: 20160427, end: 201703

REACTIONS (5)
  - Memory impairment [Recovering/Resolving]
  - Loss of consciousness [Recovering/Resolving]
  - Thrombosis [Unknown]
  - Epilepsy [Recovered/Resolved]
  - Brain neoplasm [Recovering/Resolving]

NARRATIVE: CASE EVENT DATE: 20170324
